FAERS Safety Report 21957610 (Version 1)
Quarter: 2023Q1

REPORT INFORMATION
  Report Type: Report from Study
  Country: DE (occurrence: DE)
  Receive Date: 20230206
  Receipt Date: 20230206
  Transmission Date: 20230417
  Serious: Yes (Other)
  Sender: FDA-Public Use
  Company Number: DE-TEVA-2023-DE-2850096

PATIENT
  Age: 27 Year
  Sex: Female

DRUGS (1)
  1. COPAXONE [Suspect]
     Active Substance: GLATIRAMER ACETATE
     Indication: Multiple sclerosis
     Route: 065
     Dates: start: 20180403

REACTIONS (8)
  - Throat tightness [Recovered/Resolved]
  - Loss of consciousness [Recovered/Resolved]
  - Chest discomfort [Recovered/Resolved]
  - Dyspnoea [Recovered/Resolved]
  - Paraesthesia [Recovered/Resolved]
  - Listless [Recovered/Resolved]
  - Erythema [Recovered/Resolved]
  - Immediate post-injection reaction [Recovered/Resolved]

NARRATIVE: CASE EVENT DATE: 20221201
